FAERS Safety Report 7768100-6 (Version None)
Quarter: 2011Q3

REPORT INFORMATION
  Report Type: 
  Country: None (occurrence: None)
  Receive Date: 20110922
  Receipt Date: 20110920
  Transmission Date: 20111222
  Serious: Yes (Death, Life-Threatening)
  Sender: FDA-Public Use
  Company Number: DK-BRISTOL-MYERS SQUIBB COMPANY-16074312

PATIENT
  Age: 49 Year
  Sex: Female

DRUGS (5)
  1. HEXASOPTIN [Concomitant]
     Route: 048
     Dates: end: 20040330
  2. KALETRA [Concomitant]
     Dosage: 1DF=133.3+33.3MG CAPSULES
     Route: 048
     Dates: end: 20040330
  3. ZERIT [Suspect]
     Indication: HIV INFECTION
     Route: 048
     Dates: end: 20040330
  4. EPIVIR [Concomitant]
     Dosage: TABLET
     Route: 048
  5. VIDEX EC [Suspect]
     Indication: HIV INFECTION
     Route: 048
     Dates: end: 20040330

REACTIONS (2)
  - LACTIC ACIDOSIS [None]
  - GASTROINTESTINAL HAEMORRHAGE [None]
